FAERS Safety Report 10269164 (Version 1)
Quarter: 2014Q2

REPORT INFORMATION
  Report Type: Spontaneous
  Country: US (occurrence: US)
  Receive Date: 20140630
  Receipt Date: 20140630
  Transmission Date: 20141212
  Serious: No
  Sender: FDA-Public Use
  Company Number: US-SA-2014SA039453

PATIENT
  Age: 62 Year
  Sex: Male
  Weight: 88 kg

DRUGS (12)
  1. HECTOROL [Suspect]
     Indication: PRODUCT USED FOR UNKNOWN INDICATION
     Route: 042
     Dates: start: 20140110, end: 20140129
  2. EPOGEN [Concomitant]
     Dosage: DOSE:4600 UNIT(S)
     Route: 042
     Dates: start: 20140129
  3. ZEMPLAR [Concomitant]
  4. ALLOPURINOL [Concomitant]
     Route: 048
  5. MINOXIDIL [Concomitant]
     Dosage: AND HALF TABLET BID
     Route: 048
  6. RAMIPRIL [Concomitant]
     Route: 048
  7. RENA-VITE [Concomitant]
     Route: 048
  8. RENVELA [Concomitant]
     Route: 048
  9. SENSIPAR [Concomitant]
     Route: 048
  10. THIAMINE HYDROCHLORIDE/PYRIDOXINE HYDROCHLORIDE/NICOTINAMIDE/RIBOFLAVIN [Concomitant]
  11. TUMS [Concomitant]
     Dosage: TALE 3 1000MG TUMS TID WITH MEALS
     Route: 048
  12. ZOCOR [Concomitant]
     Route: 048

REACTIONS (5)
  - Drug hypersensitivity [Recovered/Resolved]
  - Dyspnoea [Unknown]
  - Dyspepsia [Unknown]
  - Flushing [Recovered/Resolved]
  - Sensory disturbance [Recovered/Resolved]
